FAERS Safety Report 21784631 (Version 2)
Quarter: 2023Q1

REPORT INFORMATION
  Report Type: Spontaneous
  Country: JP (occurrence: JP)
  Receive Date: 20221227
  Receipt Date: 20230118
  Transmission Date: 20230417
  Serious: Yes (Hospitalization)
  Sender: FDA-Public Use
  Company Number: JP-TEVA-2022-JP-2840378

PATIENT
  Age: 77 Year
  Sex: Female

DRUGS (15)
  1. PREDNISOLONE [Suspect]
     Active Substance: PREDNISOLONE
     Indication: Lymphoma
     Dosage: RECEIVED 60 MG/BODY UNDER R-THPCOP REGIMEN
     Route: 065
  2. PREDNISOLONE [Suspect]
     Active Substance: PREDNISOLONE
     Indication: Gastrointestinal lymphoma
  3. PREDNISOLONE [Suspect]
     Active Substance: PREDNISOLONE
     Indication: Cervix carcinoma stage IV
  4. RITUXIMAB [Suspect]
     Active Substance: RITUXIMAB
     Indication: Lymphoma
     Dosage: RECEIVED 500 MG/BODY UNDER R-THPCOP REGIMEN
     Route: 065
  5. RITUXIMAB [Suspect]
     Active Substance: RITUXIMAB
     Indication: Cervix carcinoma stage IV
  6. RITUXIMAB [Suspect]
     Active Substance: RITUXIMAB
     Indication: Gastrointestinal lymphoma
  7. VINCRISTINE [Suspect]
     Active Substance: VINCRISTINE
     Indication: Lymphoma
     Dosage: RECEIVED 1 MG/BODY UNDER R-THPCOP REGIMEN
     Route: 065
  8. VINCRISTINE [Suspect]
     Active Substance: VINCRISTINE
     Indication: Gastrointestinal lymphoma
  9. VINCRISTINE [Suspect]
     Active Substance: VINCRISTINE
     Indication: Cervix carcinoma stage IV
  10. CYCLOPHOSPHAMIDE [Suspect]
     Active Substance: CYCLOPHOSPHAMIDE
     Indication: Lymphoma
     Dosage: RECEIVED 750 MG/BODY UNDER R-THPCOP REGIMEN
     Route: 065
  11. CYCLOPHOSPHAMIDE [Suspect]
     Active Substance: CYCLOPHOSPHAMIDE
     Indication: Gastrointestinal lymphoma
  12. CYCLOPHOSPHAMIDE [Suspect]
     Active Substance: CYCLOPHOSPHAMIDE
     Indication: Cervix carcinoma stage IV
  13. PIRARUBICIN [Suspect]
     Active Substance: PIRARUBICIN
     Indication: Lymphoma
     Dosage: RECEIVED 50 MG/BODY UNDER R-THPCOP REGIMEN
     Route: 065
  14. PIRARUBICIN [Suspect]
     Active Substance: PIRARUBICIN
     Indication: Gastrointestinal lymphoma
  15. PIRARUBICIN [Suspect]
     Active Substance: PIRARUBICIN
     Indication: Cervix carcinoma stage IV

REACTIONS (3)
  - Peritonitis [Recovered/Resolved]
  - Pancytopenia [Recovered/Resolved]
  - Ascites [Recovered/Resolved]
